FAERS Safety Report 21564382 (Version 1)
Quarter: 2022Q4

REPORT INFORMATION
  Report Type: Spontaneous
  Country: US (occurrence: US)
  Receive Date: 20221108
  Receipt Date: 20221108
  Transmission Date: 20230112
  Serious: No
  Sender: FDA-Public Use
  Company Number: US-drreddys-SPO/USA/22/0156536

PATIENT
  Age: 15 Year
  Sex: Female

DRUGS (1)
  1. ZENATANE [Suspect]
     Active Substance: ISOTRETINOIN
     Indication: Acne
     Dosage: RMA ISSUE DATE: 11/APRIL/2022 11:06:33 AM, 04/AUGUST/2022 02:54:03 PM, 23/SEPTEMBER/2022 02:09:01 PM

REACTIONS (1)
  - Adverse drug reaction [Unknown]
